FAERS Safety Report 7900129-7 (Version None)
Quarter: 2011Q4

REPORT INFORMATION
  Report Type: 
  Country: None (occurrence: None)
  Receive Date: 20111108
  Receipt Date: 20111027
  Transmission Date: 20120403
  Serious: No
  Sender: FDA-Public Use
  Company Number: US-BIOGENIDEC-2011BI038410

PATIENT
  Sex: Female

DRUGS (4)
  1. TYSABRI [Suspect]
     Indication: MULTIPLE SCLEROSIS
     Route: 042
     Dates: start: 20110721
  2. NUCYNTA [Concomitant]
     Indication: MYALGIA
  3. PAIN PILLS (NOS) [Concomitant]
  4. NUCYNTA [Concomitant]
     Indication: BACK PAIN

REACTIONS (12)
  - PYREXIA [None]
  - MYALGIA [None]
  - URTICARIA [None]
  - MEMORY IMPAIRMENT [None]
  - PAIN IN EXTREMITY [None]
  - HEADACHE [None]
  - MULTIPLE SCLEROSIS RELAPSE [None]
  - PAIN [None]
  - SURGERY [None]
  - VISION BLURRED [None]
  - CHEST PAIN [None]
  - NAUSEA [None]
